FAERS Safety Report 14180805 (Version 7)
Quarter: 2018Q3

REPORT INFORMATION
  Report Type: Report from Study
  Country: US (occurrence: US)
  Receive Date: 20171110
  Receipt Date: 20180717
  Transmission Date: 20181010
  Serious: Yes (Hospitalization)
  Sender: FDA-Public Use
  Company Number: US-ACTELION-A-US2017-162201

PATIENT
  Age: 71 Year
  Sex: Female
  Weight: 52.61 kg

DRUGS (3)
  1. ADCIRCA [Concomitant]
     Active Substance: TADALAFIL
  2. OPSUMIT [Suspect]
     Active Substance: MACITENTAN
     Indication: PULMONARY HYPERTENSION
     Dosage: 10 MG, QD
     Route: 048
  3. OXYGEN. [Concomitant]
     Active Substance: OXYGEN
     Dosage: 2.5 L/MIN, UNK

REACTIONS (37)
  - Multiple allergies [Unknown]
  - Wheezing [Unknown]
  - Asthenia [Not Recovered/Not Resolved]
  - Blood pressure fluctuation [Unknown]
  - Chest discomfort [Unknown]
  - Dyspnoea exertional [Unknown]
  - Tremor [Unknown]
  - Dizziness [Unknown]
  - Pyrexia [Recovered/Resolved]
  - Productive cough [Not Recovered/Not Resolved]
  - Nasal congestion [Unknown]
  - Palpitations [Unknown]
  - Blood potassium decreased [Unknown]
  - General physical health deterioration [Unknown]
  - Oedema peripheral [Unknown]
  - Hypertension [Unknown]
  - Heart rate increased [Unknown]
  - Malaise [Not Recovered/Not Resolved]
  - Oropharyngeal pain [Unknown]
  - Respiratory tract congestion [Unknown]
  - Unevaluable event [Unknown]
  - Tooth extraction [Unknown]
  - Musculoskeletal discomfort [Unknown]
  - Procedural complication [Unknown]
  - Migraine [Unknown]
  - Decreased appetite [Recovering/Resolving]
  - Diarrhoea [Unknown]
  - Oedema [Unknown]
  - Blood pressure abnormal [Unknown]
  - Dyspnoea [Unknown]
  - Weight decreased [Unknown]
  - Oxygen therapy [Unknown]
  - Chest pain [Unknown]
  - Dyspnoea at rest [Unknown]
  - Breath sounds abnormal [Unknown]
  - Cough [Unknown]
  - Fatigue [Unknown]

NARRATIVE: CASE EVENT DATE: 20171128
